FAERS Safety Report 6177566-7 (Version None)
Quarter: 2009Q2

REPORT INFORMATION
  Report Type: 
  Country: None (occurrence: None)
  Receive Date: 20090501
  Receipt Date: 20090501
  Transmission Date: 20091009
  Serious: No
  Sender: FDA-Public Use
  Company Number: None

PATIENT
  Age: 55 Year
  Sex: Female
  Weight: 70.8 kg

DRUGS (16)
  1. HALOPERIDOL [Suspect]
     Indication: AGITATION
     Dosage: 5 MG IV ONCE
     Route: 042
     Dates: start: 20090301
  2. HALOPERIDOL [Suspect]
     Indication: DELIRIUM
     Dosage: 5 MG IV ONCE
     Route: 042
     Dates: start: 20090301
  3. LANSOPRAZOLE [Concomitant]
  4. HYDROMORPHONE HCL [Concomitant]
  5. LEVOBUNOLOL HCL [Concomitant]
  6. ONDANSETRON [Concomitant]
  7. FERROUS SULFATE TAB [Concomitant]
  8. OXYCODONE HCL [Concomitant]
  9. ZINC SULFATE [Concomitant]
  10. LORAZEPAM [Concomitant]
  11. LEVOTHYROXINE SODIUM [Concomitant]
  12. VANCOMYCIN HCL [Concomitant]
  13. QUETIAPINE [Concomitant]
  14. METOPROLOL [Concomitant]
  15. PHENYTOIN [Concomitant]
  16. INSULIN ASPART [Concomitant]

REACTIONS (4)
  - CONVULSION [None]
  - DELIRIUM [None]
  - NEUROLEPTIC MALIGNANT SYNDROME [None]
  - SEROTONIN SYNDROME [None]
